FAERS Safety Report 5031296-3 (Version None)
Quarter: 2006Q2

REPORT INFORMATION
  Report Type: 
  Country: None (occurrence: None)
  Receive Date: 20060619
  Receipt Date: 20060619
  Transmission Date: 20061013
  Serious: Yes (Life-Threatening, Hospitalization)
  Sender: FDA-Public Use
  Company Number: None

PATIENT
  Sex: Male
  Weight: 108.8633 kg

DRUGS (15)
  1. LYRICA [Suspect]
     Indication: NEURALGIA
     Dosage: 100 MG TID PO
     Route: 048
     Dates: start: 20060501, end: 20060616
  2. LYRICA [Suspect]
     Indication: PAIN IN EXTREMITY
     Dosage: 100 MG TID PO
     Route: 048
     Dates: start: 20060501, end: 20060616
  3. ACETAMINOPHEN AND HYDROCODONE BITARTRATE [Concomitant]
  4. DURAGESIC-100 [Concomitant]
  5. KLONOPIN [Concomitant]
  6. ZANAFLEX [Concomitant]
  7. CRESTOR [Concomitant]
  8. PROSCAR [Concomitant]
  9. FLOMAX [Concomitant]
  10. ASPIRIN [Concomitant]
  11. COMBIVENT [Concomitant]
  12. LOTREL [Concomitant]
  13. PLAVIX [Concomitant]
  14. PLETAL [Concomitant]
  15. CRESTOR [Suspect]

REACTIONS (6)
  - ASTHENIA [None]
  - BLOOD CREATINE PHOSPHOKINASE INCREASED [None]
  - BLOOD CREATININE INCREASED [None]
  - BLOOD UREA INCREASED [None]
  - FALL [None]
  - HYPOTENSION [None]
